FAERS Safety Report 8187136-7 (Version None)
Quarter: 2012Q1

REPORT INFORMATION
  Report Type: 
  Country: None (occurrence: None)
  Receive Date: 20120306
  Receipt Date: 20120228
  Transmission Date: 20120608
  Serious: Yes (Hospitalization, Other)
  Sender: FDA-Public Use
  Company Number: US-ACTELION-A-US2012-60669

PATIENT

DRUGS (3)
  1. VALPROIC ACID [Concomitant]
  2. VENTAVIS [Suspect]
     Indication: PULMONARY ARTERIAL HYPERTENSION
     Dosage: UNK
     Route: 055
     Dates: start: 20100218
  3. PULMICORT [Concomitant]

REACTIONS (6)
  - ARTHRALGIA [None]
  - CHEST PAIN [None]
  - PEPTIC ULCER [None]
  - OESOPHAGITIS [None]
  - BACK PAIN [None]
  - HELICOBACTER TEST POSITIVE [None]
